FAERS Safety Report 6542425-4 (Version None)
Quarter: 2010Q1

REPORT INFORMATION
  Report Type: 
  Country: None (occurrence: None)
  Receive Date: 20100114
  Receipt Date: 20100114
  Transmission Date: 20100710
  Serious: Yes (Death)
  Sender: FDA-Public Use
  Company Number: None

PATIENT
  Sex: Male
  Weight: 58 kg

DRUGS (2)
  1. LENALIDOMIDE 20MG/DAY [Suspect]
     Indication: HODGKIN'S DISEASE
     Dosage: 20MG PO QDAY, 21/28DAYS
     Route: 048
     Dates: start: 20080623, end: 20091124
  2. ATIVAN [Concomitant]

REACTIONS (2)
  - NO THERAPEUTIC RESPONSE [None]
  - PANCYTOPENIA [None]
